FAERS Safety Report 16500138 (Version 2)
Quarter: 2019Q3

REPORT INFORMATION
  Report Type: Spontaneous
  Country: AT (occurrence: AT)
  Receive Date: 20190701
  Receipt Date: 20190715
  Transmission Date: 20191004
  Serious: Yes (Death, Disabling, Other)
  Sender: FDA-Public Use
  Company Number: PHHY2019AT149758

PATIENT
  Age: 70 Year
  Sex: Male

DRUGS (1)
  1. RYDAPT [Suspect]
     Active Substance: MIDOSTAURIN
     Indication: ACUTE MYELOID LEUKAEMIA
     Dosage: 25 MG, BID (2-0-2)
     Route: 048
     Dates: start: 20181126, end: 20190226

REACTIONS (4)
  - Blast crisis in myelogenous leukaemia [Fatal]
  - Inappropriate schedule of product administration [Unknown]
  - Leukaemia recurrent [Unknown]
  - Agitated depression [Not Recovered/Not Resolved]

NARRATIVE: CASE EVENT DATE: 20181126
